FAERS Safety Report 6505285-3 (Version None)
Quarter: 2009Q4

REPORT INFORMATION
  Report Type: 
  Country: None (occurrence: None)
  Receive Date: 20091218
  Receipt Date: 20091208
  Transmission Date: 20100525
  Serious: Yes (Other)
  Sender: FDA-Public Use
  Company Number: VE-JNJFOC-20091203330

PATIENT
  Age: 71 Year
  Sex: Male

DRUGS (2)
  1. REMICADE [Suspect]
     Indication: PSORIATIC ARTHROPATHY
     Dosage: 10TH INFUSION
     Route: 042
     Dates: start: 20080101, end: 20091123
  2. REMICADE [Suspect]
     Indication: RHEUMATOID ARTHRITIS
     Route: 042
     Dates: start: 20080101, end: 20091123

REACTIONS (10)
  - CHILLS [None]
  - DIARRHOEA [None]
  - ECZEMA [None]
  - FATIGUE [None]
  - HYPERTHERMIA [None]
  - INFUSION RELATED REACTION [None]
  - MOUTH ULCERATION [None]
  - NAUSEA [None]
  - VOMITING [None]
  - WEIGHT DECREASED [None]
